FAERS Safety Report 5595356-0 (Version None)
Quarter: 2008Q1

REPORT INFORMATION
  Report Type: 
  Country: None (occurrence: None)
  Receive Date: 20080117
  Receipt Date: 20080109
  Transmission Date: 20080703
  Serious: No
  Sender: FDA-Public Use
  Company Number: JP-BAXTER-2008BH000376

PATIENT
  Age: 63 Year
  Sex: Male
  Weight: 62 kg

DRUGS (1)
  1. 3% SORBITOL IRRIGATION SOLUTION IN PLASTIC CONTAINER [Suspect]
     Indication: TRANSURETHRAL PROSTATECTOMY
     Dosage: DOSE UNIT:UNKNOWN
     Route: 066

REACTIONS (4)
  - ANAEMIA [None]
  - DEPRESSED LEVEL OF CONSCIOUSNESS [None]
  - HYPONATRAEMIA [None]
  - SUPRAVENTRICULAR EXTRASYSTOLES [None]
